FAERS Safety Report 5173225-8 (Version None)
Quarter: 2006Q4

REPORT INFORMATION
  Report Type: 
  Country: None (occurrence: None)
  Receive Date: 20061205
  Receipt Date: 20061127
  Transmission Date: 20070319
  Serious: Yes (Hospitalization)
  Sender: FDA-Public Use
  Company Number: T04-BEL-02571-01

PATIENT
  Age: 75 Year
  Sex: Male

DRUGS (10)
  1. MEMANTINE HCL [Suspect]
     Indication: DEMENTIA ALZHEIMER'S TYPE
     Dosage: 10 MG BID PO
     Route: 048
     Dates: start: 20030708, end: 20040608
  2. LACRYSTAT [Concomitant]
  3. PRANOX (PRANOPROFEN) [Concomitant]
  4. ACETYLSALICYLIC ACID SRT [Concomitant]
  5. PERSANTINE [Concomitant]
  6. CITALOPRAM HYDROBROMIDE [Concomitant]
  7. TRAZOLAM (TRAZODONE HYDROCHLORIDE) [Concomitant]
  8. PANTOZOL (PANTOPRAZOLE SODIUM) [Concomitant]
  9. DIAMICRON (GLICLAZIDE) [Concomitant]
  10. GLUCOPHAGE (METFORMIN HYDROCHLORIDE) (METFORMIN HYDROCHLORIDE) [Concomitant]

REACTIONS (24)
  - ABNORMAL BEHAVIOUR [None]
  - AGGRESSION [None]
  - AGITATION [None]
  - BLOOD GLUCOSE INCREASED [None]
  - CHOLECYSTITIS ACUTE [None]
  - DEPRESSED LEVEL OF CONSCIOUSNESS [None]
  - GAIT DISTURBANCE [None]
  - GLABELLAR REFLEX ABNORMAL [None]
  - GLYCOSYLATED HAEMOGLOBIN INCREASED [None]
  - HAEMATOCRIT DECREASED [None]
  - HAEMOGLOBIN DECREASED [None]
  - HYPERTONIA [None]
  - MEMORY IMPAIRMENT [None]
  - MUSCLE RIGIDITY [None]
  - MUSCULOSKELETAL PAIN [None]
  - RED BLOOD CELL COUNT DECREASED [None]
  - REFLUX OESOPHAGITIS [None]
  - SINUS ARRHYTHMIA [None]
  - SINUS TACHYCARDIA [None]
  - SOCIAL AVOIDANT BEHAVIOUR [None]
  - SUPRAVENTRICULAR EXTRASYSTOLES [None]
  - TREMOR [None]
  - VENTRICULAR EXTRASYSTOLES [None]
  - WEIGHT DECREASED [None]
